FAERS Safety Report 5059527-4 (Version None)
Quarter: 2006Q3

REPORT INFORMATION
  Report Type: 
  Country: None (occurrence: None)
  Receive Date: 20060724
  Receipt Date: 20060714
  Transmission Date: 20061208
  Serious: Yes (Hospitalization)
  Sender: FDA-Public Use
  Company Number: PHBS2006BR10649

PATIENT
  Age: 42 Year
  Sex: Female
  Weight: 53.3 kg

DRUGS (2)
  1. ACLASTA [Suspect]
     Indication: MELORHEOSTOSIS
     Dosage: 5 MG, ONCE/SINGLE
     Route: 042
     Dates: start: 20060324, end: 20060324
  2. LEVOTHYROXINE SODIUM [Concomitant]
     Dosage: 25 MG/D

REACTIONS (6)
  - ARTHRALGIA [None]
  - HAEMORRHOID OPERATION [None]
  - HAEMORRHOIDS [None]
  - OEDEMA PERIPHERAL [None]
  - PROCTALGIA [None]
  - SWELLING [None]
